FAERS Safety Report 10744773 (Version 1)
Quarter: 2015Q1

REPORT INFORMATION
  Report Type: Spontaneous
  Country: US (occurrence: None)
  Receive Date: 20150120
  Receipt Date: 20150120
  Transmission Date: 20150721
  Serious: No
  Sender: FDA-Public Use
  Company Number: AEGR000856

PATIENT
  Age: 64 Year
  Sex: Male
  Weight: 84.8 kg

DRUGS (11)
  1. SERTRALINE [Concomitant]
     Active Substance: SERTRALINE HYDROCHLORIDE
  2. CARVEDILOL. [Concomitant]
     Active Substance: CARVEDILOL
  3. GLIMEPIRIDE. [Concomitant]
     Active Substance: GLIMEPIRIDE
  4. MELOXICAM. [Concomitant]
     Active Substance: MELOXICAM
  5. CELEXA [Concomitant]
     Active Substance: CITALOPRAM HYDROBROMIDE
  6. JUXTAPID [Suspect]
     Active Substance: LOMITAPIDE MESYLATE
     Indication: HYPERCHOLESTEROLAEMIA
     Route: 048
     Dates: start: 201409, end: 20141116
  7. CITALOPRAM  (CITALOPRAM HYDROBROMIDE) [Concomitant]
  8. OMEPRAZOLE. [Concomitant]
     Active Substance: OMEPRAZOLE
  9. TEMAZEPAM. [Concomitant]
     Active Substance: TEMAZEPAM
  10. LOSARTAN [Concomitant]
     Active Substance: LOSARTAN
  11. TRAZODONE [Concomitant]
     Active Substance: TRAZODONE HYDROCHLORIDE

REACTIONS (6)
  - Vomiting [None]
  - Pyrexia [None]
  - Flatulence [None]
  - Off label use [None]
  - Diarrhoea [None]
  - Gastroenteritis viral [None]

NARRATIVE: CASE EVENT DATE: 201309
